FAERS Safety Report 8149607-9 (Version None)
Quarter: 2012Q1

REPORT INFORMATION
  Report Type: 
  Country: None (occurrence: None)
  Receive Date: 20120218
  Receipt Date: 20111103
  Transmission Date: 20120608
  Serious: No
  Sender: FDA-Public Use
  Company Number: US-ALLERGAN-1114526US

PATIENT
  Age: 51 Year
  Sex: Female
  Weight: 54.422 kg

DRUGS (2)
  1. BOTOX COSMETIC [Suspect]
     Indication: SKIN WRINKLING
     Dosage: UNK
     Route: 030
     Dates: start: 20110606, end: 20110606
  2. RESTYLANE                          /00567501/ [Concomitant]
     Indication: SKIN WRINKLING
     Dosage: UNK
     Route: 030
     Dates: start: 20110606, end: 20110606

REACTIONS (2)
  - EYE SWELLING [None]
  - PRURITUS [None]
